FAERS Safety Report 21986448 (Version 2)
Quarter: 2023Q1

REPORT INFORMATION
  Report Type: Report from Study
  Country: DE (occurrence: DE)
  Receive Date: 20230213
  Receipt Date: 20230227
  Transmission Date: 20230418
  Serious: Yes (Hospitalization)
  Sender: FDA-Public Use
  Company Number: DE-JNJFOC-20230122443

PATIENT
  Sex: Female

DRUGS (13)
  1. BORTEZOMIB [Suspect]
     Active Substance: BORTEZOMIB
     Indication: Plasma cell myeloma
     Dosage: 1.3 MILLIGRAM/SQ. METER, LAST DOSE 12-DEC-2022 AND
     Route: 058
     Dates: start: 20221130
  2. BORTEZOMIB [Suspect]
     Active Substance: BORTEZOMIB
     Dosage: 1.3 MILLIGRAM/SQ. METER, LAST DOSE: 02-JAN-2023
     Route: 058
     Dates: start: 20221130
  3. BORTEZOMIB [Suspect]
     Active Substance: BORTEZOMIB
     Dosage: 1.3 MILLIGRAM/SQ. METER, LAST DOSE 05-JAN-2023 AND NEXT DOSE 04-FEB-2023
     Route: 058
     Dates: start: 20221229
  4. LENALIDOMIDE [Suspect]
     Active Substance: LENALIDOMIDE
     Indication: Plasma cell myeloma
     Dosage: 100 MG, LAST DOSE 27-DEC-2022 AND NEXT DOSE 26-JAN
     Route: 048
     Dates: start: 20221130
  5. THALIDOMIDE [Suspect]
     Active Substance: THALIDOMIDE
     Indication: Plasma cell myeloma
     Dosage: 100 MG, LAST DOSE 08-JAN-2023 AND NEXT DOSE 07-FEB
     Route: 048
     Dates: start: 20221130
  6. THALIDOMIDE [Suspect]
     Active Substance: THALIDOMIDE
     Dosage: 100 MG, LAST DOSE 08-JAN-2023 AND NEXT DOSE 07-FEB
     Route: 048
     Dates: start: 20221229
  7. DARATUMUMAB [Suspect]
     Active Substance: DARATUMUMAB
     Indication: Plasma cell myeloma
     Dosage: 16 MILLIGRAM/KILOGRAM, LAST DOSE 05/JAN/2023 AND
     Route: 042
     Dates: start: 20221130
  8. DARATUMUMAB [Suspect]
     Active Substance: DARATUMUMAB
     Dosage: 16 MILLIGRAM/KILOGRAM8, LAST DOSE 23-JAN-2023 AND
     Route: 042
     Dates: start: 20221207
  9. DARATUMUMAB [Suspect]
     Active Substance: DARATUMUMAB
     Dosage: 16 MILLIGRAM/KILOGRAM, LAST DOSE 05-JAN-2023 AND
     Route: 042
     Dates: start: 20221229
  10. DEXAMETHASONE [Suspect]
     Active Substance: DEXAMETHASONE
     Indication: Plasma cell myeloma
     Dosage: 40 MG,LAST DOSE 24-DEC-2022 AND NEXT DOSE 23-JAN
     Route: 048
     Dates: start: 20221208
  11. DEXAMETHASONE [Suspect]
     Active Substance: DEXAMETHASONE
     Dosage: 40 MG, LAST DOSE 06-JAN-2023 AND NEXT DOSE 05-FEB
     Route: 048
     Dates: start: 20221230
  12. DEXAMETHASONE [Suspect]
     Active Substance: DEXAMETHASONE
     Indication: Plasma cell myeloma
     Dosage: 40 MG, LAST DOSE 23-DEC-2022 AND NEXT DOSE 22-JAN
     Route: 042
     Dates: start: 20221130
  13. DEXAMETHASONE [Suspect]
     Active Substance: DEXAMETHASONE
     Dosage: 40 MG, LAST DOSE 05-JAN-2023 AND NEXT DOSE 04-FEB
     Route: 042
     Dates: start: 20221229

REACTIONS (2)
  - Erythema [Not Recovered/Not Resolved]
  - Dermatitis [Recovered/Resolved]

NARRATIVE: CASE EVENT DATE: 20230109
